FAERS Safety Report 15557519 (Version 1)
Quarter: 2018Q4

REPORT INFORMATION
  Report Type: Spontaneous
  Country: FR (occurrence: FR)
  Receive Date: 20181027
  Receipt Date: 20181027
  Transmission Date: 20190205
  Serious: Yes (Hospitalization)
  Sender: FDA-Public Use
  Company Number: FR-ROCHE-2205845

PATIENT
  Age: 68 Year
  Sex: Female
  Weight: 53 kg

DRUGS (3)
  1. AVASTIN [Suspect]
     Active Substance: BEVACIZUMAB
     Indication: OVARIAN CANCER
     Dosage: STRENGTH: 25 MG/ML
     Route: 042
     Dates: start: 20151007, end: 20170125
  2. PACLITAXEL. [Concomitant]
     Active Substance: PACLITAXEL
     Indication: OVARIAN CANCER
     Route: 042
     Dates: start: 20150916, end: 20160127
  3. CARBOPLATINE [Concomitant]
     Active Substance: CARBOPLATIN
     Indication: OVARIAN CANCER
     Route: 042
     Dates: start: 20150916, end: 20160113

REACTIONS (1)
  - Focal segmental glomerulosclerosis [Not Recovered/Not Resolved]

NARRATIVE: CASE EVENT DATE: 201701
